FAERS Safety Report 4864205-8 (Version None)
Quarter: 2005Q4

REPORT INFORMATION
  Report Type: 
  Country: None (occurrence: None)
  Receive Date: 20051219
  Receipt Date: 20051201
  Transmission Date: 20060501
  Serious: Yes (Hospitalization)
  Sender: FDA-Public Use
  Company Number: 220063

PATIENT
  Age: 69 Year
  Sex: Male
  Weight: 104.6 kg

DRUGS (11)
  1. AVASTIN [Suspect]
     Indication: COLORECTAL CANCER
     Dosage: 540 MG, Q2W, INTRAVENOUS
     Route: 042
     Dates: start: 20050907
  2. AVASTIN [Suspect]
  3. IRIINOTECAN (IRINOTECAN HYDROCHLORIDE) [Suspect]
     Indication: COLORECTAL CANCER
     Dosage: 396 MG
     Dates: start: 20050907, end: 20051116
  4. FLUOROURACIL [Suspect]
     Indication: COLORECTAL CANCER
     Dosage: SEE IMAGE, IV BOLUS
     Route: 040
     Dates: start: 20050907, end: 20051123
  5. FLUOROURACIL [Suspect]
     Indication: COLORECTAL CANCER
     Dosage: SEE IMAGE, IV BOLUS
     Route: 040
     Dates: start: 20050907
  6. LEUCOVORIN CALCIUM [Suspect]
     Indication: COLORECTAL CANCER
     Dosage: 880 MG
     Dates: start: 20050907, end: 20051116
  7. ATROPINE [Concomitant]
  8. ZOFRAN [Concomitant]
  9. AN (METOCLOPRAMIDE HYDROCHLORIDE) [Concomitant]
  10. PANTOLOC (PANTOPRAZOLE) [Concomitant]
  11. HYDROCHLOROTHIAZIDE [Concomitant]

REACTIONS (8)
  - ANOREXIA [None]
  - CHILLS [None]
  - HERPES SIMPLEX [None]
  - MALAISE [None]
  - MYALGIA [None]
  - NAUSEA [None]
  - PYREXIA [None]
  - VOMITING [None]
